FAERS Safety Report 24137653 (Version 1)
Quarter: 2024Q3

REPORT INFORMATION
  Report Type: Spontaneous
  Country: US (occurrence: None)
  Receive Date: 20240724
  Receipt Date: 20240724
  Transmission Date: 20241016
  Serious: Yes (unspecified)
  Sender: Public
  Company Number: None

PATIENT
  Age: 35 Year
  Sex: Female
  Weight: 63.5 kg

DRUGS (1)
  1. HERBALS\SALICYLIC ACID [Suspect]
     Active Substance: HERBALS\SALICYLIC ACID

REACTIONS (4)
  - Dry skin [None]
  - Erythema [None]
  - Acne [None]
  - Product advertising issue [None]

NARRATIVE: CASE EVENT DATE: 20240720
